FAERS Safety Report 8861098 (Version 1)
Quarter: 2012Q4

REPORT INFORMATION
  Report Type: Spontaneous
  Country: DE (occurrence: None)
  Receive Date: 20121023
  Receipt Date: 20121023
  Transmission Date: 20130627
  Serious: Yes (Disabling, Other)
  Sender: FDA-Public Use
  Company Number: DE-1193247

PATIENT
  Age: 54 Year
  Sex: Female
  Weight: 65 kg

DRUGS (6)
  1. TRAVATAN [Suspect]
     Indication: NORMAL TENSION GLAUCOMA
     Route: 047
     Dates: start: 2008
  2. TRAVATAN [Suspect]
     Route: 047
     Dates: end: 2012
  3. MARCUMAR [Concomitant]
  4. CARVEDILOL [Concomitant]
  5. SIMVASTATIN [Concomitant]
  6. HCT [Concomitant]

REACTIONS (4)
  - Asthma [None]
  - Chest discomfort [None]
  - Cough [None]
  - Skin hyperpigmentation [None]
